FAERS Safety Report 13484958 (Version 1)
Quarter: 2017Q2

REPORT INFORMATION
  Report Type: Spontaneous
  Country: US (occurrence: US)
  Receive Date: 20170425
  Receipt Date: 20170425
  Transmission Date: 20170830
  Serious: No
  Sender: FDA-Public Use
  Company Number: US-JNJFOC-20170305252

PATIENT
  Age: 89 Year
  Sex: Female
  Weight: 60.33 kg

DRUGS (8)
  1. MULTI VITAMIN [Concomitant]
     Active Substance: VITAMINS
     Indication: GENERAL PHYSICAL CONDITION
     Route: 065
  2. COQ10 [Concomitant]
     Active Substance: UBIDECARENONE
     Indication: CARDIAC DISORDER
     Route: 065
  3. TYLENOL 8 HR ARTHRITIS PAIN [Suspect]
     Active Substance: ACETAMINOPHEN
     Indication: OSTEOARTHRITIS
     Dosage: 8 HOURS APART BUT BETWEEN 6AM-7PM
     Route: 048
     Dates: start: 20170222
  4. ASPIRIN. [Concomitant]
     Active Substance: ASPIRIN
     Indication: PRODUCT USED FOR UNKNOWN INDICATION
     Route: 065
  5. TYLENOL 8 HR ARTHRITIS PAIN [Suspect]
     Active Substance: ACETAMINOPHEN
     Indication: OSTEOARTHRITIS
     Dosage: 2 CAPLETS EVERY 12 HOURS OR SO
     Route: 048
     Dates: end: 20170308
  6. TYLENOL 8 HR ARTHRITIS PAIN [Suspect]
     Active Substance: ACETAMINOPHEN
     Indication: ARTHRALGIA
     Dosage: 2 CAPLETS EVERY 12 HOURS OR SO
     Route: 048
     Dates: end: 20170308
  7. TYLENOL 8 HR ARTHRITIS PAIN [Suspect]
     Active Substance: ACETAMINOPHEN
     Indication: ARTHRALGIA
     Dosage: 8 HOURS APART BUT BETWEEN 6AM-7PM
     Route: 048
     Dates: start: 20170222
  8. HYALURONIC ACID [Concomitant]
     Active Substance: HYALURONIC ACID
     Indication: OSTEOPOROSIS PROPHYLAXIS
     Route: 065

REACTIONS (5)
  - Chest pain [Recovered/Resolved]
  - Liver disorder [Unknown]
  - Inappropriate schedule of drug administration [Unknown]
  - Drug effect incomplete [Unknown]
  - Intentional underdose [Unknown]

NARRATIVE: CASE EVENT DATE: 2017
